FAERS Safety Report 22146752 (Version 6)
Quarter: 2023Q4

REPORT INFORMATION
  Report Type: Spontaneous
  Country: PE (occurrence: PE)
  Receive Date: 20230328
  Receipt Date: 20231113
  Transmission Date: 20240110
  Serious: Yes (Other)
  Sender: FDA-Public Use
  Company Number: PE-PFIZER INC-PV202300056091

PATIENT
  Age: 60 Year
  Sex: Female

DRUGS (3)
  1. XELJANZ XR [Suspect]
     Active Substance: TOFACITINIB CITRATE
     Indication: Rheumatoid arthritis
     Dosage: 11 MG, DAILY
     Route: 048
     Dates: start: 2022
  2. METHOTREXATE [Suspect]
     Active Substance: METHOTREXATE
     Indication: Rheumatoid arthritis
     Dosage: 2 DF, EVERY 2 DAYS
     Route: 048
     Dates: start: 2023
  3. METHOTREXATE SODIUM [Concomitant]
     Active Substance: METHOTREXATE SODIUM
     Dosage: 2.5 MG(2 TABLETS EVERY 2 DAYS)
     Route: 048

REACTIONS (19)
  - Tooth disorder [Recovered/Resolved]
  - Bursitis [Unknown]
  - Limb injury [Unknown]
  - Drug ineffective [Unknown]
  - Overweight [Unknown]
  - Helicobacter infection [Recovering/Resolving]
  - Gastritis [Unknown]
  - Nausea [Unknown]
  - Flatulence [Unknown]
  - Nasopharyngitis [Recovered/Resolved]
  - Swelling [Recovered/Resolved]
  - Eye contusion [Recovered/Resolved]
  - Facial pain [Recovered/Resolved]
  - Skin burning sensation [Recovered/Resolved]
  - Tonsillar disorder [Recovered/Resolved]
  - Ear pain [Recovered/Resolved]
  - Productive cough [Recovered/Resolved]
  - Inflammation [Recovered/Resolved]
  - Intentional product misuse [Unknown]

NARRATIVE: CASE EVENT DATE: 20230501
